FAERS Safety Report 22267074 (Version 1)
Quarter: 2023Q2

REPORT INFORMATION
  Report Type: Spontaneous
  Country: US (occurrence: US)
  Receive Date: 20230428
  Receipt Date: 20230428
  Transmission Date: 20230721
  Serious: No
  Sender: FDA-Public Use
  Company Number: US-TEVA-2023-US-2878564

PATIENT

DRUGS (1)
  1. BUPROPION [Suspect]
     Active Substance: BUPROPION
     Indication: Product used for unknown indication
     Dosage: STRENGTH: 100 MG

REACTIONS (4)
  - Nausea [Unknown]
  - Feeling abnormal [Unknown]
  - Product odour abnormal [Unknown]
  - Product taste abnormal [Unknown]
